FAERS Safety Report 14709217 (Version 1)
Quarter: 2018Q2

REPORT INFORMATION
  Report Type: Spontaneous
  Country: US (occurrence: US)
  Receive Date: 20180403
  Receipt Date: 20180403
  Transmission Date: 20180711
  Serious: No
  Sender: FDA-Public Use
  Company Number: US-GLAXOSMITHKLINE-US2018051610

PATIENT
  Sex: Female

DRUGS (2)
  1. VOLTAREN [Suspect]
     Active Substance: DICLOFENAC SODIUM
     Indication: ARTHRITIS
     Dosage: UNK
     Route: 061
  2. VOLTAREN [Suspect]
     Active Substance: DICLOFENAC SODIUM
     Indication: BACK PAIN

REACTIONS (5)
  - Wrong technique in product usage process [Unknown]
  - Drug effective for unapproved indication [Unknown]
  - Inappropriate schedule of drug administration [Unknown]
  - Product administered at inappropriate site [Unknown]
  - Off label use [Unknown]
